FAERS Safety Report 17712458 (Version 6)
Quarter: 2020Q3

REPORT INFORMATION
  Report Type: Spontaneous
  Country: US (occurrence: US)
  Receive Date: 20200427
  Receipt Date: 20200817
  Transmission Date: 20201102
  Serious: No
  Sender: FDA-Public Use
  Company Number: US-PFIZER INC-2020164183

PATIENT
  Age: 63 Year
  Sex: Female
  Weight: 113.4 kg

DRUGS (5)
  1. SOMAVERT [Suspect]
     Active Substance: PEGVISOMANT
     Indication: ACROMEGALY
     Dosage: 10 MG, 1X/DAY
  2. SOMAVERT [Suspect]
     Active Substance: PEGVISOMANT
     Indication: GIGANTISM
     Dosage: 15 MG, 1X/DAY
  3. SOMAVERT [Suspect]
     Active Substance: PEGVISOMANT
     Dosage: 20 MG, 1X/DAY
  4. SOMAVERT [Suspect]
     Active Substance: PEGVISOMANT
     Dosage: 25 MG, 1X/DAY
     Dates: start: 202004
  5. SOMAVERT [Suspect]
     Active Substance: PEGVISOMANT
     Dosage: 25 MG, DAILY (EVERY DAY)
     Route: 058
     Dates: start: 20200117

REACTIONS (2)
  - Product dose omission issue [Unknown]
  - Drug ineffective [Unknown]
